FAERS Safety Report 12476275 (Version 1)
Quarter: 2016Q2

REPORT INFORMATION
  Report Type: Spontaneous
  Country: US (occurrence: US)
  Receive Date: 20160617
  Receipt Date: 20160617
  Transmission Date: 20160815
  Serious: Yes (Other)
  Sender: FDA-Public Use
  Company Number: US-CIPLA LTD.-2016US07181

PATIENT

DRUGS (15)
  1. LOPINAVIR/RITONAVIR [Suspect]
     Active Substance: LOPINAVIR\RITONAVIR
     Indication: HIV INFECTION
     Dosage: 400/100 MG, UNK
     Route: 048
  2. NEVIRAPINE. [Suspect]
     Active Substance: NEVIRAPINE
     Indication: HIV INFECTION
     Dosage: UNK, FIRST LINE
     Route: 065
  3. TENOFOVIR/EMTRICITABINE [Suspect]
     Active Substance: EMTRICITABINE\TENOFOVIR
     Indication: HIV INFECTION
     Dosage: 300/200 MG, UNK
     Route: 065
  4. ABACAVIR/LAMIVUDINE/ZIDOVUDINE 300/150/300 LUPIN [Suspect]
     Active Substance: ABACAVIR SULFATE\LAMIVUDINE\ZIDOVUDINE
     Indication: HIV INFECTION
     Dosage: 300/150/300 MG, UNK
     Route: 065
  5. LAMIVUDINE. [Suspect]
     Active Substance: LAMIVUDINE
     Indication: HIV INFECTION
     Dosage: UNK, FIRST LINE
     Route: 065
  6. ZIDOVUDINE. [Suspect]
     Active Substance: ZIDOVUDINE
     Indication: HIV INFECTION
     Dosage: UNK, FIRST LINE
     Route: 065
  7. ABACAVIR. [Suspect]
     Active Substance: ABACAVIR
     Indication: HIV INFECTION
     Dosage: UNK
     Route: 065
  8. LAMIVUDINE. [Suspect]
     Active Substance: LAMIVUDINE
     Dosage: UNK
     Route: 065
  9. EFAVIRENZ [Suspect]
     Active Substance: EFAVIRENZ
     Indication: HIV INFECTION
     Dosage: UNK, FIRST LINE
     Route: 065
  10. ABACAVIR SULFATE/LAMIVUDINE [Suspect]
     Active Substance: ABACAVIR SULFATE\LAMIVUDINE
     Indication: HIV INFECTION
     Dosage: UNK
     Route: 065
  11. ZIDOVUDINE. [Suspect]
     Active Substance: ZIDOVUDINE
     Dosage: 300 MG, UNK
     Route: 065
  12. TENOFOVIR [Suspect]
     Active Substance: TENOFOVIR
     Indication: HIV INFECTION
     Dosage: UNK, FIRST LINE
     Route: 065
  13. EMTRICITABINE/TENOFOVIR/ZIDOVUDINE [Suspect]
     Active Substance: EMTRICITABINE\TENOFOVIR\ZIDOVUDINE
     Indication: HIV INFECTION
     Dosage: UNK
     Route: 065
  14. LAMIVUDINE/ZIDOVUDINE [Suspect]
     Active Substance: LAMIVUDINE\ZIDOVUDINE
     Indication: HIV INFECTION
     Dosage: 150/300 MG, UNK
     Route: 065
  15. STAVUDINE. [Suspect]
     Active Substance: STAVUDINE
     Indication: HIV INFECTION
     Dosage: UNK, FIRST LINE
     Route: 065

REACTIONS (2)
  - Virologic failure [Unknown]
  - Cerebrovascular accident [Unknown]
